FAERS Safety Report 6267100-5 (Version None)
Quarter: 2009Q3

REPORT INFORMATION
  Report Type: 
  Country: None (occurrence: None)
  Receive Date: 20090714
  Receipt Date: 20090701
  Transmission Date: 20100115
  Serious: Yes (Other)
  Sender: FDA-Public Use
  Company Number: US-PFIZER INC-2009215022

PATIENT
  Sex: Male
  Weight: 90.703 kg

DRUGS (2)
  1. CHANTIX [Suspect]
     Indication: SMOKING CESSATION THERAPY
     Dosage: 1 MG, 2X/DAY
     Route: 048
     Dates: start: 20090421
  2. GLYBURIDE [Concomitant]
     Indication: DIABETES MELLITUS
     Dosage: UNK

REACTIONS (3)
  - BLOOD GLUCOSE INCREASED [None]
  - INCREASED APPETITE [None]
  - SOMNOLENCE [None]
